FAERS Safety Report 15395878 (Version 2)
Quarter: 2018Q4

REPORT INFORMATION
  Report Type: Spontaneous
  Country: US (occurrence: US)
  Receive Date: 20180918
  Receipt Date: 20181130
  Transmission Date: 20190204
  Serious: Yes (Hospitalization, Other)
  Sender: FDA-Public Use
  Company Number: US-BAYER-2018-170977

PATIENT
  Age: 63 Year
  Sex: Male
  Weight: 86.17 kg

DRUGS (8)
  1. METFORMIN [Concomitant]
     Active Substance: METFORMIN HYDROCHLORIDE
     Dosage: UNK
  2. BAYER LOW DOSE [Suspect]
     Active Substance: ASPIRIN
     Indication: PRODUCT USED FOR UNKNOWN INDICATION
     Dosage: UNK
     Dates: end: 201807
  3. ATORVASTATIN [Concomitant]
     Active Substance: ATORVASTATIN
     Dosage: UNK
  4. LISINOPRIL. [Concomitant]
     Active Substance: LISINOPRIL
     Dosage: UNK
  5. HUMIRA [Concomitant]
     Active Substance: ADALIMUMAB
     Indication: CROHN^S DISEASE
  6. PLAVIX [Interacting]
     Active Substance: CLOPIDOGREL BISULFATE
     Indication: PRODUCT USED FOR UNKNOWN INDICATION
     Dosage: UNK
     Dates: end: 201807
  7. HUMIRA [Concomitant]
     Active Substance: ADALIMUMAB
     Indication: COLITIS ULCERATIVE
     Dosage: 1 DF, OW
     Route: 058
     Dates: end: 2018
  8. RANEXA [Concomitant]
     Active Substance: RANOLAZINE
     Dosage: UNK

REACTIONS (10)
  - Cystitis [None]
  - Atrioventricular block [None]
  - Potentiating drug interaction [Unknown]
  - Prostatic perforation [Unknown]
  - Device related infection [Unknown]
  - Coronary artery occlusion [Unknown]
  - Impaired healing [Unknown]
  - Benign prostatic hyperplasia [Recovering/Resolving]
  - Prostatic haemorrhage [Unknown]
  - Coagulation time prolonged [Unknown]

NARRATIVE: CASE EVENT DATE: 2018
